FAERS Safety Report 4803699-0 (Version None)
Quarter: 2005Q4

REPORT INFORMATION
  Report Type: 
  Country: None (occurrence: None)
  Receive Date: 20051014
  Receipt Date: 20050929
  Transmission Date: 20060501
  Serious: Yes (Life-Threatening, Other)
  Sender: FDA-Public Use
  Company Number: GBR-2005-0001903

PATIENT
  Sex: Male

DRUGS (1)
  1. OXYNORM LIQUID 5 MG/ 5 ML (OXYCODONE HYDROCHLORIDE) ORAL SOLUTION [Suspect]
     Dosage: ORAL
     Route: 048

REACTIONS (3)
  - ACCIDENTAL OVERDOSE [None]
  - INCORRECT DOSE ADMINISTERED [None]
  - MEDICATION ERROR [None]
